FAERS Safety Report 6854668-0 (Version None)
Quarter: 2010Q3

REPORT INFORMATION
  Report Type: 
  Country: None (occurrence: None)
  Receive Date: 20100717
  Receipt Date: 20080109
  Transmission Date: 20110219
  Serious: No
  Sender: FDA-Public Use
  Company Number: US-PFIZER INC-2008004552

PATIENT
  Sex: Female
  Weight: 95.454 kg

DRUGS (4)
  1. CHANTIX [Suspect]
     Indication: SMOKING CESSATION THERAPY
     Dates: start: 20080104
  2. ATENOLOL [Concomitant]
     Indication: BLOOD PRESSURE ABNORMAL
  3. MAXZIDE [Concomitant]
     Indication: BLOOD PRESSURE ABNORMAL
  4. LEXAPRO [Concomitant]

REACTIONS (1)
  - BRADYCARDIA [None]
